FAERS Safety Report 4566403-X (Version None)
Quarter: 2005Q1

REPORT INFORMATION
  Report Type: 
  Country: None (occurrence: None)
  Receive Date: 20050201
  Receipt Date: 20041227
  Transmission Date: 20050727
  Serious: Yes (Other)
  Sender: FDA-Public Use
  Company Number: 200414866FR

PATIENT
  Age: 66 Year
  Sex: Female
  Weight: 52 kg

DRUGS (3)
  1. LOVENOX [Suspect]
     Indication: THROMBOSIS PROPHYLAXIS
     Route: 058
     Dates: start: 20041215, end: 20050115
  2. ASPEGIC 325 [Concomitant]
     Route: 048
     Dates: start: 20041230
  3. IRON [Concomitant]
     Indication: ANAEMIA
     Route: 048

REACTIONS (3)
  - FIBRIN INCREASED [None]
  - INFLAMMATION [None]
  - THROMBOCYTHAEMIA [None]
